FAERS Safety Report 6336088-0 (Version None)
Quarter: 2009Q3

REPORT INFORMATION
  Report Type: 
  Country: None (occurrence: None)
  Receive Date: 20090828
  Receipt Date: 20090828
  Transmission Date: 20100115
  Serious: Yes (Other)
  Sender: FDA-Public Use
  Company Number: None

PATIENT
  Sex: Female
  Weight: 92.5338 kg

DRUGS (1)
  1. ALLI [Suspect]
     Indication: WEIGHT DECREASED
     Dosage: 3 PILLS DAILY AFTER FATTY
     Dates: start: 20080501, end: 20090827

REACTIONS (4)
  - ABDOMINAL PAIN UPPER [None]
  - ERYTHEMA [None]
  - PRURITUS [None]
  - SCRATCH [None]
